FAERS Safety Report 12885127 (Version 2)
Quarter: 2016Q4

REPORT INFORMATION
  Report Type: Report from Study
  Country: CR (occurrence: CR)
  Receive Date: 20161026
  Receipt Date: 20161109
  Transmission Date: 20170207
  Serious: Yes (Other)
  Sender: FDA-Public Use
  Company Number: PHHY2016CR146512

PATIENT
  Sex: Female
  Weight: 54.42 kg

DRUGS (2)
  1. EXELON PATCH [Suspect]
     Active Substance: RIVASTIGMINE
     Indication: DEMENTIA ALZHEIMER^S TYPE
     Dosage: 9.5 MG, PATCH 10 (CM2) EVERY 3 DAYS
     Route: 062
  2. CLONAZEPAM. [Concomitant]
     Active Substance: CLONAZEPAM
     Indication: PRODUCT USED FOR UNKNOWN INDICATION
     Dosage: 25 DRP, QD
     Route: 065

REACTIONS (8)
  - Cerebrovascular accident [Unknown]
  - Urinary tract infection [Recovered/Resolved]
  - Delusion [Unknown]
  - Depression [Unknown]
  - Respiratory tract infection [Recovered/Resolved]
  - Cognitive disorder [Unknown]
  - Blood pressure fluctuation [Unknown]
  - Prescribed underdose [Unknown]
